FAERS Safety Report 15301708 (Version 6)
Quarter: 2018Q4

REPORT INFORMATION
  Report Type: Report from Study
  Country: US (occurrence: US)
  Receive Date: 20180821
  Receipt Date: 20181204
  Transmission Date: 20190204
  Serious: Yes (Hospitalization, Other)
  Sender: FDA-Public Use
  Company Number: US-PFIZER INC-2018304103

PATIENT
  Age: 65 Year
  Sex: Female

DRUGS (5)
  1. IBRANCE [Suspect]
     Active Substance: PALBOCICLIB
     Dosage: 100 MG, CYCLIC (DAILY FOR 21 DAYS ON AND 7 DAYS OFF)
     Route: 048
     Dates: start: 20181006, end: 20181103
  2. IBRANCE [Suspect]
     Active Substance: PALBOCICLIB
     Dosage: 125 MG, CYCLIC (ONCE DAILY 21 DAYS ON AND 7 DAYS OFF)
     Route: 048
     Dates: start: 201808, end: 201808
  3. FASLODEX [Concomitant]
     Active Substance: FULVESTRANT
     Dosage: UNK UNK, MONTHLY
  4. IBRANCE [Suspect]
     Active Substance: PALBOCICLIB
     Indication: BREAST CANCER METASTATIC
     Dosage: 125 MG, CYCLIC (ONCE DAILY 21 DAYS ON AND 7 DAYS OFF)
     Route: 048
     Dates: start: 20180713, end: 20180810
  5. IBRANCE [Suspect]
     Active Substance: PALBOCICLIB
     Dosage: 100 MG, CYCLIC (DAILY FOR 21 DAYS ON AND 7 DAYS OFF)
     Route: 048
     Dates: start: 20180921, end: 20180927

REACTIONS (16)
  - Condition aggravated [Not Recovered/Not Resolved]
  - Neutropenia [Unknown]
  - Intestinal obstruction [Not Recovered/Not Resolved]
  - Leukopenia [Unknown]
  - White blood cell count decreased [Unknown]
  - Constipation [Unknown]
  - Pruritus [Recovered/Resolved]
  - Headache [Unknown]
  - Blood pressure decreased [Unknown]
  - Asthenia [Unknown]
  - Insomnia [Recovered/Resolved]
  - Bone marrow failure [Unknown]
  - Pruritus generalised [Recovered/Resolved]
  - Blister [Unknown]
  - Fatigue [Not Recovered/Not Resolved]
  - Muscle spasms [Unknown]

NARRATIVE: CASE EVENT DATE: 2018
